FAERS Safety Report 7273216-7 (Version None)
Quarter: 2011Q1

REPORT INFORMATION
  Report Type: 
  Country: None (occurrence: None)
  Receive Date: 20110203
  Receipt Date: 20110125
  Transmission Date: 20110831
  Serious: Yes (Other)
  Sender: FDA-Public Use
  Company Number: US-JNJFOC-20110107015

PATIENT
  Sex: Female
  Weight: 59.42 kg

DRUGS (12)
  1. TRILEPTAL [Concomitant]
  2. NORVASC [Concomitant]
  3. REMICADE [Suspect]
     Dosage: 5MG/KG
     Route: 042
  4. LEVOTHYROXINE [Concomitant]
  5. ZESTRIL [Concomitant]
  6. MIRENA [Concomitant]
  7. AMBIEN [Concomitant]
  8. KLONOPIN [Concomitant]
  9. RISPERDAL [Concomitant]
  10. REMICADE [Suspect]
     Route: 042
  11. ASACOL [Concomitant]
  12. REMICADE [Suspect]
     Indication: CROHN'S DISEASE
     Route: 042

REACTIONS (1)
  - HEPATIC STEATOSIS [None]
